FAERS Safety Report 11747594 (Version 3)
Quarter: 2015Q4

REPORT INFORMATION
  Report Type: Spontaneous
  Country: JP (occurrence: JP)
  Receive Date: 20151117
  Receipt Date: 20151206
  Transmission Date: 20160304
  Serious: Yes (Other)
  Sender: FDA-Public Use
  Company Number: JP-ASTRAZENECA-2015SE61014

PATIENT
  Age: 63 Year
  Sex: Female

DRUGS (3)
  1. CLARITH [Concomitant]
     Active Substance: CLARITHROMYCIN
     Indication: BRONCHITIS
     Dosage: DOSE UNKNOWN
     Route: 048
     Dates: start: 20150608, end: 20150610
  2. MEDICON [Concomitant]
     Active Substance: DEXTROMETHORPHAN HYDROBROMIDE
     Indication: BRONCHITIS
     Route: 048
     Dates: start: 20150608, end: 20150610
  3. SYMBICORT [Suspect]
     Active Substance: BUDESONIDE\FORMOTEROL FUMARATE DIHYDRATE
     Indication: ASTHMA
     Dosage: 1 INHALATION TWICE DAILY
     Route: 055
     Dates: start: 20150608, end: 20150610

REACTIONS (2)
  - Aptyalism [Unknown]
  - Inflammation [Unknown]

NARRATIVE: CASE EVENT DATE: 20150610
